FAERS Safety Report 9890776 (Version 1)
Quarter: 2014Q1

REPORT INFORMATION
  Report Type: Spontaneous
  Country: US (occurrence: None)
  Receive Date: 20140210
  Receipt Date: 20140210
  Transmission Date: 20141002
  Serious: Yes (Life-Threatening, Hospitalization)
  Sender: FDA-Public Use
  Company Number: None

PATIENT
  Age: 66 Year
  Sex: Female
  Weight: 79.38 kg

DRUGS (3)
  1. PRAXADA [Suspect]
     Indication: ATRIAL FIBRILLATION
     Route: 048
     Dates: start: 20130601, end: 20130613
  2. CELLCEPT [Concomitant]
  3. PREDNISONE [Concomitant]

REACTIONS (2)
  - Epistaxis [None]
  - Anaemia [None]
